FAERS Safety Report 19823740 (Version 1)
Quarter: 2021Q3

REPORT INFORMATION
  Report Type: Spontaneous
  Country: US (occurrence: US)
  Receive Date: 20210913
  Receipt Date: 20210913
  Transmission Date: 20211014
  Serious: Yes (Hospitalization)
  Sender: FDA-Public Use
  Company Number: US-MYLANLABS-2021M1061125

PATIENT
  Sex: Female

DRUGS (2)
  1. CYSTAGON [Suspect]
     Active Substance: CYSTEAMINE BITARTRATE
     Indication: CYSTINOSIS
     Dosage: 350 MILLIGRAM, Q6H
     Route: 048
     Dates: start: 20200901
  2. CYSTAGON [Suspect]
     Active Substance: CYSTEAMINE BITARTRATE
     Indication: CYSTINOSIS
     Dosage: 350 MILLIGRAM, Q6H
     Route: 048
     Dates: start: 20200901

REACTIONS (1)
  - Organ transplant [Unknown]
